FAERS Safety Report 6822637-2 (Version None)
Quarter: 2010Q3

REPORT INFORMATION
  Report Type: 
  Country: None (occurrence: None)
  Receive Date: 20100708
  Receipt Date: 20100623
  Transmission Date: 20110219
  Serious: Yes (Other)
  Sender: FDA-Public Use
  Company Number: CA-PFIZER INC-2010064197

PATIENT
  Age: 67 Year
  Sex: Female

DRUGS (12)
  1. LIPITOR [Suspect]
     Indication: BLOOD CHOLESTEROL INCREASED
     Dosage: 20 MG, 1X/DAY
     Route: 048
     Dates: end: 20100303
  2. LIPITOR [Suspect]
     Dosage: 40 MG, 1X/DAY
     Route: 048
     Dates: start: 20100304, end: 20100425
  3. LIPITOR [Suspect]
     Dosage: 20 MG, 1X/DAY
     Route: 048
     Dates: start: 20100426
  4. VAGIFEM [Concomitant]
     Indication: VULVOVAGINAL DRYNESS
     Dosage: 25 UG, 2X/WEEK
     Route: 067
     Dates: start: 20050201
  5. OMEPRAZOLE [Concomitant]
     Indication: GASTROOESOPHAGEAL REFLUX DISEASE
     Dosage: 20 MG, 1X/DAY
     Dates: start: 20050301
  6. LISINOPRIL [Concomitant]
     Indication: HYPERTENSION
     Dosage: 10 MG, 1X/DAY
     Dates: start: 20020501
  7. SINGULAIR ^MERCK FROSST^ [Concomitant]
     Indication: ASTHMA
     Dosage: 10 MG, 1X/DAY AT BEDTIME
     Dates: start: 20020501
  8. PULMICORT [Concomitant]
     Indication: ASTHMA
     Dosage: 2 PUFFS, 2X/DAY
     Route: 055
     Dates: start: 20020501
  9. SYNTHROID [Concomitant]
     Indication: HYPOTHYROIDISM
     Dosage: 25 UG, 1X/DAY
     Dates: start: 20070701
  10. AMITRIPTYLINE [Concomitant]
     Indication: PAIN
     Dosage: 25-50 MG, AS NEEDED AT BEDTIME
     Dates: start: 20020501
  11. AMITRIPTYLINE [Concomitant]
     Indication: SLEEP DISORDER
     Dosage: 25 MG, AS NEEDED
     Dates: start: 20020501
  12. PIROXICAM [Concomitant]
     Indication: PAIN
     Dosage: 20 MG, TWICE DAILY AS NEEDED
     Dates: start: 20020401

REACTIONS (2)
  - HIGH DENSITY LIPOPROTEIN DECREASED [None]
  - LOW DENSITY LIPOPROTEIN INCREASED [None]
